FAERS Safety Report 4438881-8 (Version None)
Quarter: 2004Q3

REPORT INFORMATION
  Report Type: 
  Country: None (occurrence: None)
  Receive Date: 20040830
  Receipt Date: 20040818
  Transmission Date: 20050211
  Serious: Yes (Hospitalization)
  Sender: FDA-Public Use
  Company Number: ENDC20040044

PATIENT
  Age: 64 Year
  Sex: Female

DRUGS (2)
  1. ENDOCET   UNK  ENDO [Suspect]
     Dates: start: 20020621
  2. METHOTREXATE [Suspect]

REACTIONS (2)
  - DUODENAL ULCER [None]
  - HAEMATEMESIS [None]
